FAERS Safety Report 8300055-8 (Version None)
Quarter: 2012Q2

REPORT INFORMATION
  Report Type: 
  Country: None (occurrence: None)
  Receive Date: 20120417
  Receipt Date: 20120404
  Transmission Date: 20120825
  Serious: Yes (Hospitalization, Other)
  Sender: FDA-Public Use
  Company Number: 2011HGS-002462

PATIENT
  Age: 33 Year
  Sex: Female
  Weight: 100 kg

DRUGS (8)
  1. BELIMUMAB [Suspect]
     Indication: SYSTEMIC LUPUS ERYTHEMATOSUS
     Dosage: 1 MG/KG, 1 IN 28 D, INTRAVENOUS DRIP; 1 MG/KG, 1 IN 28 D, INTRAVENOUS DRIP
     Dates: start: 20071105
  2. BELIMUMAB [Suspect]
     Indication: SYSTEMIC LUPUS ERYTHEMATOSUS
     Dosage: 1 MG/KG, 1 IN 28 D, INTRAVENOUS DRIP; 1 MG/KG, 1 IN 28 D, INTRAVENOUS DRIP
     Dates: start: 20081202, end: 20110712
  3. ALFA METHYL DOPA (METHYLDOPA) (METHYLDOPA) [Concomitant]
  4. AZATHIOPRINE (AZATHIOPRINE) (AZATHIOPRINE) [Concomitant]
  5. FOLIC ACID [Concomitant]
  6. SALICYLIC ACID (SALICYLIC ACID) (SALICYLIC ACID) [Concomitant]
  7. MEPREDNISONE (MEPREDNISONE) (MEPREDNISONE) [Concomitant]
  8. HYDROXYCHLORQUINE (HYDROXYCHLOROQUINE) (HYDROXYCHLOROQUINE) [Concomitant]

REACTIONS (5)
  - HYPERTENSIVE CRISIS [None]
  - MATERNAL EXPOSURE DURING PREGNANCY [None]
  - CAESAREAN SECTION [None]
  - PRE-ECLAMPSIA [None]
  - GESTATIONAL DIABETES [None]
